FAERS Safety Report 23353343 (Version 1)
Quarter: 2023Q4

REPORT INFORMATION
  Report Type: Spontaneous
  Country: NL (occurrence: NL)
  Receive Date: 20231231
  Receipt Date: 20231231
  Transmission Date: 20240109
  Serious: Yes (Other)
  Sender: FDA-Public Use
  Company Number: NL-LRB-00933727

PATIENT
  Age: 39 Year
  Sex: Female
  Weight: 95 kg

DRUGS (2)
  1. OXYCODONE HYDROCHLORIDE [Suspect]
     Active Substance: OXYCODONE HYDROCHLORIDE
     Indication: Pain
     Dosage: MAX 1 PIECE 4 TIMES A DAY
     Route: 065
     Dates: start: 20231115
  2. LISDEXAMFETAMINE [Concomitant]
     Active Substance: LISDEXAMFETAMINE
     Indication: Product used for unknown indication
     Dosage: CAPSULE, 50 MG (MILLIGRAM)
     Route: 065

REACTIONS (1)
  - Dysuria [Recovered/Resolved]
